FAERS Safety Report 9295190 (Version 1)
Quarter: 2013Q2

REPORT INFORMATION
  Report Type: Spontaneous
  Country: US (occurrence: None)
  Receive Date: 20130516
  Receipt Date: 20130516
  Transmission Date: 20140414
  Serious: Yes (Hospitalization)
  Sender: FDA-Public Use
  Company Number: None

PATIENT
  Age: 89 Year
  Sex: Female
  Weight: 61 kg

DRUGS (7)
  1. TRAMADOL [Suspect]
     Indication: PAIN
     Route: 048
     Dates: start: 20121128, end: 20131113
  2. HCTZ [Concomitant]
  3. METOPROLOL XL [Concomitant]
  4. LEVOTHYROXINE [Concomitant]
  5. LATANAPROST OPTHALMIC [Concomitant]
  6. CHOLECALC [Concomitant]
  7. INFEROL [Concomitant]

REACTIONS (3)
  - Hallucinations, mixed [None]
  - Atrial fibrillation [None]
  - Insomnia [None]
